FAERS Safety Report 14665389 (Version 2)
Quarter: 2018Q2

REPORT INFORMATION
  Report Type: Spontaneous
  Country: US (occurrence: US)
  Receive Date: 20180321
  Receipt Date: 20180502
  Transmission Date: 20180711
  Serious: No
  Sender: FDA-Public Use
  Company Number: US-PFIZER INC-2018109788

PATIENT
  Age: 75 Year
  Sex: Male
  Weight: 86.18 kg

DRUGS (2)
  1. NITROGLYCERIN. [Suspect]
     Active Substance: NITROGLYCERIN
     Indication: OESOPHAGEAL SPASM
     Dosage: 0.4 MG, UNK (HE TOOK 12 TO 15 OF THESE TABLETS)
     Route: 060
  2. ISOSORBIDE. [Concomitant]
     Active Substance: ISOSORBIDE
     Indication: OESOPHAGEAL SPASM
     Dosage: 30 MG, 2X/DAY
     Route: 048

REACTIONS (4)
  - Product use in unapproved indication [Unknown]
  - Intentional product misuse [Unknown]
  - Intentional overdose [Unknown]
  - Drug ineffective [Unknown]
